FAERS Safety Report 10544469 (Version 2)
Quarter: 2014Q4

REPORT INFORMATION
  Report Type: Spontaneous
  Country: US (occurrence: US)
  Receive Date: 20141027
  Receipt Date: 20141107
  Transmission Date: 20150529
  Serious: Yes (Hospitalization, Other)
  Sender: FDA-Public Use
  Company Number: US-GLAXOSMITHKLINE-US2014GSK011633

PATIENT
  Sex: Female

DRUGS (11)
  1. SYNTHROID [Concomitant]
     Active Substance: LEVOTHYROXINE SODIUM
  2. COQ10 [Concomitant]
     Active Substance: UBIDECARENONE
  3. DIGOXIN-SPECIFIC ANTIBODY FRAGMENT [Concomitant]
  4. LIPITOR [Concomitant]
     Active Substance: ATORVASTATIN CALCIUM
  5. TYLENOL [Concomitant]
     Active Substance: ACETAMINOPHEN
  6. COZAAR [Suspect]
     Active Substance: LOSARTAN POTASSIUM
  7. COREG [Suspect]
     Active Substance: CARVEDILOL
     Indication: CARDIAC FAILURE CONGESTIVE
     Dosage: 6.25 MG, BID
     Route: 048
     Dates: start: 2003
  8. LASIX [Concomitant]
     Active Substance: FUROSEMIDE
  9. MULTIVITAMIN [Concomitant]
     Active Substance: VITAMINS
  10. XARELTO [Suspect]
     Active Substance: RIVAROXABAN
  11. ASPIRIN (BABY) [Concomitant]

REACTIONS (4)
  - Haemorrhage [Recovered/Resolved]
  - Pulmonary oedema [Recovered/Resolved]
  - Hypotension [Unknown]
  - Blood potassium decreased [Recovered/Resolved]

NARRATIVE: CASE EVENT DATE: 2014
